FAERS Safety Report 11664932 (Version 2)
Quarter: 2015Q4

REPORT INFORMATION
  Report Type: Spontaneous
  Country: DE (occurrence: DE)
  Receive Date: 20151027
  Receipt Date: 20151105
  Transmission Date: 20160304
  Serious: Yes (Other)
  Sender: FDA-Public Use
  Company Number: DE-ACTAVIS-2015-22884

PATIENT
  Age: 68 Year
  Sex: Female

DRUGS (1)
  1. PYLERA [Suspect]
     Active Substance: BISMUTH SUBCITRATE POTASSIUM\METRONIDAZOLE\TETRACYCLINE HYDROCHLORIDE
     Indication: PRODUCT USED FOR UNKNOWN INDICATION
     Dosage: UNK UNK, UNKNOWN
     Route: 065
     Dates: start: 20151008, end: 20151017

REACTIONS (8)
  - Chromaturia [Recovered/Resolved]
  - Dysgeusia [Recovered/Resolved]
  - Head discomfort [Recovered/Resolved]
  - Tremor [Recovered/Resolved]
  - Fatigue [Recovered/Resolved]
  - Faeces discoloured [Not Recovered/Not Resolved]
  - Lip swelling [Not Recovered/Not Resolved]
  - Anxiety [Recovered/Resolved]
